FAERS Safety Report 10188163 (Version 2)
Quarter: 2014Q4

REPORT INFORMATION
  Report Type: Spontaneous
  Country: FR (occurrence: FR)
  Receive Date: 20140522
  Receipt Date: 20141222
  Transmission Date: 20150528
  Serious: Yes (Hospitalization)
  Sender: FDA-Public Use
  Company Number: FR-SA-2014SA059436

PATIENT
  Age: 60 Year
  Sex: Male

DRUGS (25)
  1. CARBOPLATIN. [Suspect]
     Active Substance: CARBOPLATIN
     Route: 042
     Dates: start: 201402
  2. SPECIAFOLDINE [Concomitant]
     Active Substance: FOLIC ACID
  3. COMBIGAN [Concomitant]
     Active Substance: BRIMONIDINE TARTRATE\TIMOLOL MALEATE
     Dosage: EYE DROPS
  4. HYPERIUM [Concomitant]
     Active Substance: RILMENIDINE PHOSPHATE
  5. METHYLPREDNISOLONE. [Suspect]
     Active Substance: METHYLPREDNISOLONE
     Route: 065
     Dates: start: 201402
  6. MAG [Concomitant]
  7. EMEND [Suspect]
     Active Substance: APREPITANT
     Route: 065
     Dates: start: 201402
  8. ZOPHREN [Suspect]
     Active Substance: ONDANSETRON
     Route: 065
     Dates: start: 201402
  9. ALPRAZOLAM. [Concomitant]
     Active Substance: ALPRAZOLAM
     Dosage: 0.25 3X/DAY IF NEEDED
  10. HYPERIUM [Concomitant]
     Active Substance: RILMENIDINE PHOSPHATE
     Dosage: DOSE REDUCED
  11. AMLODIPINE [Concomitant]
     Active Substance: AMLODIPINE BESYLATE
  12. TRIATEC [Concomitant]
     Active Substance: RAMIPRIL
  13. ATENOLOL. [Concomitant]
     Active Substance: ATENOLOL
  14. LYRICA [Concomitant]
     Active Substance: PREGABALIN
  15. TAXOTERE [Suspect]
     Active Substance: DOCETAXEL
     Route: 042
     Dates: start: 201402
  16. CELLCEPT [Suspect]
     Active Substance: MYCOPHENOLATE MOFETIL\MYCOPHENOLATE MOFETIL HYDROCHLORIDE
     Route: 065
     Dates: end: 201402
  17. ZARZIO [Concomitant]
     Active Substance: FILGRASTIM
     Dates: start: 20140227, end: 20140303
  18. MOPRAL [Concomitant]
     Active Substance: OMEPRAZOLE SODIUM
     Dosage: GASTRO-RESISTANT MICROGRANULES IN CAPSULE FORM
  19. TRUSOPT [Concomitant]
     Active Substance: DORZOLAMIDE HYDROCHLORIDE
  20. SOLUPRED [Suspect]
     Active Substance: PREDNISOLONE
     Route: 065
  21. FLUOROURACIL. [Suspect]
     Active Substance: FLUOROURACIL
     Dosage: DAY 1 TO DAY 5
     Route: 042
     Dates: start: 201402
  22. IMOVANE [Concomitant]
     Active Substance: ZOPICLONE
  23. VITAMIN C [Concomitant]
     Active Substance: ASCORBIC ACID
  24. DOLIPRANE [Concomitant]
     Active Substance: ACETAMINOPHEN
     Dosage: X4 PER DAY IF NECESSARY
  25. ALDACTONE [Concomitant]
     Active Substance: SPIRONOLACTONE
     Dosage: TABLETS DIVISIBLE

REACTIONS (6)
  - Febrile neutropenia [Recovered/Resolved]
  - Diarrhoea [Recovered/Resolved]
  - Lymphopenia [Unknown]
  - Thrombocytopenia [Recovered/Resolved]
  - Atrial fibrillation [Recovered/Resolved]
  - Hypokalaemia [Recovered/Resolved]

NARRATIVE: CASE EVENT DATE: 20140301
